FAERS Safety Report 25219259 (Version 4)
Quarter: 2025Q2

REPORT INFORMATION
  Report Type: Spontaneous
  Country: JP (occurrence: JP)
  Receive Date: 20250421
  Receipt Date: 20250516
  Transmission Date: 20250717
  Serious: Yes (Other)
  Sender: SANOFI AVENTIS
  Company Number: JP-SA-2025SA113002

PATIENT
  Age: 78 Year
  Sex: Male
  Weight: 65 kg

DRUGS (7)
  1. ETHAMBUTOL [Suspect]
     Active Substance: ETHAMBUTOL HYDROCHLORIDE
     Indication: Mycobacterial infection
     Dosage: 250 MG, QD
  2. RIFADIN [Suspect]
     Active Substance: RIFAMPIN
     Indication: Mycobacterial infection
     Dosage: 600 MG, QD
  3. RIFADIN [Suspect]
     Active Substance: RIFAMPIN
     Dosage: 50 MG, QD (RESTARTED ON HOSPITAL DAY 85)
  4. RIFADIN [Suspect]
     Active Substance: RIFAMPIN
     Dosage: 400 MG, QD (GRADUALLY INCREASED)
  5. LEVOFLOXACIN [Suspect]
     Active Substance: LEVOFLOXACIN
     Indication: Mycobacterial infection
     Dosage: 500 MG, QD
  6. ISONIAZID [Concomitant]
     Active Substance: ISONIAZID
     Indication: Mycobacterial infection
     Dosage: 300 MG, QD
  7. CEFEPIME [Concomitant]
     Active Substance: CEFEPIME HYDROCHLORIDE
     Indication: Mycobacterial infection
     Dosage: 2 G, QD

REACTIONS (3)
  - Optic atrophy [Unknown]
  - Myelosuppression [Unknown]
  - Jaundice [Unknown]
